FAERS Safety Report 9460564 (Version 1)
Quarter: 2013Q3

REPORT INFORMATION
  Report Type: Spontaneous
  Country: PL (occurrence: PL)
  Receive Date: 20130815
  Receipt Date: 20130815
  Transmission Date: 20140515
  Serious: Yes (Other)
  Sender: FDA-Public Use
  Company Number: PL-ACTAVIS-2013-14711

PATIENT
  Age: 56 Year
  Sex: Female

DRUGS (2)
  1. PACLITAXEL (UNKNOWN) [Suspect]
     Indication: OVARIAN CANCER
     Dosage: 281.52 MG, UNKNOWN
     Route: 041
     Dates: start: 20130717, end: 20130717
  2. CARBOPLATIN [Concomitant]
     Indication: OVARIAN CANCER
     Dosage: 538.73 MG, UNKNOWN
     Dates: start: 20130717, end: 20130717

REACTIONS (3)
  - Erythema [Recovered/Resolved]
  - Back pain [Recovered/Resolved]
  - Dyspnoea [Recovered/Resolved]
